FAERS Safety Report 5339599-X (Version None)
Quarter: 2007Q2

REPORT INFORMATION
  Report Type: 
  Country: None (occurrence: None)
  Receive Date: 20070525
  Receipt Date: 20070515
  Transmission Date: 20071010
  Serious: Yes (Death)
  Sender: FDA-Public Use
  Company Number: 123

PATIENT
  Sex: Male

DRUGS (1)
  1. FAZACLO 100 MG    AVANIR PHARMACEUTICALS [Suspect]
     Dosage: 100 MG PO DAILY
     Route: 048
     Dates: start: 20070423, end: 20070501

REACTIONS (1)
  - COMPLETED SUICIDE [None]
